FAERS Safety Report 10373720 (Version 1)
Quarter: 2014Q1

REPORT INFORMATION
  Report Type: Spontaneous
  Country: US (occurrence: None)
  Receive Date: 20140306
  Receipt Date: 20140306
  Transmission Date: 20141002
  Serious: Yes (Other)
  Sender: FDA-Public Use
  Company Number: 163-21880-13072056

PATIENT
  Age: 69 Year
  Sex: Male

DRUGS (7)
  1. REVLIMID (LENALIDOMIDE) (10 MILLIGRAM, CAPSULES) [Suspect]
     Indication: PLASMA CELL MYELOMA
     Dosage: 21 IN 21 D
     Route: 048
     Dates: start: 20120726
  2. ACETYL L-CARNITINE (ACETYLCARNITINE) [Concomitant]
  3. BACTRIM DS (BACTRIM) [Concomitant]
  4. CALICUM+  D + K (NATURE MADE CALCIUM D + K) [Concomitant]
  5. DEXAMETHASONE [Concomitant]
  6. MULTI-VITAMIN (MULTIVITAMINS) [Concomitant]
  7. PRESERVISION/LUTEIN (PRESVERVISION LUTEIN) [Concomitant]

REACTIONS (1)
  - Diverticulitis [None]
